FAERS Safety Report 22188276 (Version 5)
Quarter: 2023Q2

REPORT INFORMATION
  Report Type: Report from Study
  Country: US (occurrence: US)
  Receive Date: 20230408
  Receipt Date: 20230609
  Transmission Date: 20230722
  Serious: No
  Sender: FDA-Public Use
  Company Number: US-002147023-NVSC2023US078716

PATIENT
  Age: 55 Year
  Sex: Female

DRUGS (1)
  1. KESIMPTA [Suspect]
     Active Substance: OFATUMUMAB
     Indication: Multiple sclerosis
     Dosage: 20 MG, QW
     Route: 058
     Dates: start: 20230401

REACTIONS (4)
  - Pain [Recovering/Resolving]
  - Pain in extremity [Unknown]
  - Myalgia [Unknown]
  - Product supply issue [Unknown]

NARRATIVE: CASE EVENT DATE: 20230401
